FAERS Safety Report 20364965 (Version 1)
Quarter: 2022Q1

REPORT INFORMATION
  Report Type: Report from Study
  Country: BE (occurrence: BE)
  Receive Date: 20220122
  Receipt Date: 20220122
  Transmission Date: 20220423
  Serious: Yes (Death, Other)
  Sender: FDA-Public Use
  Company Number: BE-JNJFOC-20220127979

PATIENT
  Age: 52 Year
  Sex: Female

DRUGS (1)
  1. BORTEZOMIB [Suspect]
     Active Substance: BORTEZOMIB
     Indication: Plasma cell myeloma
     Dosage: UNK
     Route: 065

REACTIONS (2)
  - Myelopathy [Fatal]
  - Cauda equina syndrome [Fatal]

NARRATIVE: CASE EVENT DATE: 20210406
